FAERS Safety Report 4661811-0 (Version None)
Quarter: 2005Q2

REPORT INFORMATION
  Report Type: 
  Country: None (occurrence: None)
  Receive Date: 20050511
  Receipt Date: 20050511
  Transmission Date: 20051028
  Serious: Yes (Hospitalization)
  Sender: FDA-Public Use
  Company Number: None

PATIENT
  Age: 59 Year
  Sex: Male

DRUGS (5)
  1. ATENOLOL [Suspect]
     Indication: HYPERTENSION
     Dosage: 50 MG QD
     Dates: start: 19991101
  2. NIFEDIPINE [Concomitant]
  3. DIVALPROEX SODIUM [Concomitant]
  4. ZIPRASIDONE [Concomitant]
  5. METFORMIN [Concomitant]

REACTIONS (2)
  - BRADYCARDIA [None]
  - FALL [None]
